FAERS Safety Report 14071133 (Version 1)
Quarter: 2017Q4

REPORT INFORMATION
  Report Type: Spontaneous
  Country: US (occurrence: US)
  Receive Date: 20171010
  Receipt Date: 20171010
  Transmission Date: 20180321
  Serious: No
  Sender: FDA-Public Use
  Company Number: US-JNJFOC-20170907559

PATIENT
  Age: 86 Year
  Sex: Male

DRUGS (19)
  1. ALBUTEROL SULFATE. [Concomitant]
     Active Substance: ALBUTEROL SULFATE
  2. IPRATROPIUM BROMIDE. [Concomitant]
     Active Substance: IPRATROPIUM BROMIDE
  3. LOSARTAN. [Concomitant]
     Active Substance: LOSARTAN
  4. SALINE [Concomitant]
     Active Substance: SODIUM CHLORIDE
     Route: 045
  5. GLUCOSAMINE [Concomitant]
     Active Substance: GLUCOSAMINE
  6. MULTIVITAMINS [Concomitant]
     Active Substance: VITAMINS
  7. POLYVINYL ALCOHOL [Concomitant]
     Active Substance: POLYVINYL ALCOHOL
     Route: 047
  8. SIMVASTATIN. [Concomitant]
     Active Substance: SIMVASTATIN
  9. LORATADINE. [Concomitant]
     Active Substance: LORATADINE
  10. TAMSULOSIN [Concomitant]
     Active Substance: TAMSULOSIN
  11. FLUTICASONE. [Concomitant]
     Active Substance: FLUTICASONE
     Route: 045
  12. CYANOCOBALAMIN. [Concomitant]
     Active Substance: CYANOCOBALAMIN
  13. AMLODIPINE [Concomitant]
     Active Substance: AMLODIPINE BESYLATE
  14. ASPIRIN. [Concomitant]
     Active Substance: ASPIRIN
     Route: 048
  15. CALCIUM CARBONATE W/COLECALCIFEROL [Concomitant]
     Active Substance: CALCIUM CARBONATE\CHOLECALCIFEROL
  16. IMBRUVICA [Suspect]
     Active Substance: IBRUTINIB
     Indication: PRODUCT USED FOR UNKNOWN INDICATION
     Route: 048
     Dates: start: 20170601
  17. LANSOPRAZOLE. [Concomitant]
     Active Substance: LANSOPRAZOLE
  18. CALCIUM POLYCARBOPHIL. [Concomitant]
     Active Substance: CALCIUM POLYCARBOPHIL
  19. DOCUSATE [Concomitant]
     Active Substance: DOCUSATE

REACTIONS (1)
  - Tooth extraction [Recovered/Resolved]

NARRATIVE: CASE EVENT DATE: 201708
